FAERS Safety Report 8400359-4 (Version None)
Quarter: 2012Q2

REPORT INFORMATION
  Report Type: 
  Country: None (occurrence: None)
  Receive Date: 20120531
  Receipt Date: 20120523
  Transmission Date: 20120825
  Serious: Yes (Hospitalization, Disabling)
  Sender: FDA-Public Use
  Company Number: US-ACTELION-A-NJ2012-66224

PATIENT

DRUGS (10)
  1. COUMADIN [Concomitant]
  2. TORSEMIDE [Concomitant]
  3. CARVEDILOL [Concomitant]
  4. TRACLEER [Suspect]
     Indication: PULMONARY ARTERIAL HYPERTENSION
     Dosage: UNK
     Route: 048
     Dates: start: 20111110, end: 20120505
  5. SYNTHROID [Concomitant]
  6. OXYCONTIN [Concomitant]
  7. TRACLEER [Suspect]
     Dosage: UNK
     Route: 048
     Dates: start: 20120524
  8. POTASSIUM CHLORIDE [Concomitant]
  9. COLCHICINE [Concomitant]
  10. PRAVASTAN [Concomitant]

REACTIONS (2)
  - DIALYSIS [None]
  - RENAL FAILURE ACUTE [None]
